FAERS Safety Report 8819373 (Version 2)
Quarter: 2012Q4

REPORT INFORMATION
  Report Type: Spontaneous
  Country: US (occurrence: None)
  Receive Date: 20121003
  Receipt Date: 20121017
  Transmission Date: 20130627
  Serious: Yes (Hospitalization, Other)
  Sender: FDA-Public Use
  Company Number: ADR-2012-01800

PATIENT
  Age: 13 Year
  Sex: Male

DRUGS (2)
  1. BACLOFEN INTRATHECAL (BACLOFEN INJECTION) [Suspect]
     Indication: SPASTICITY
  2. BACLOFEN INTRATHECAL (BACLOFEN INJECTION) [Suspect]
     Indication: MOVEMENT DISORDER

REACTIONS (10)
  - Retching [None]
  - Dyspnoea [None]
  - Pyrexia [None]
  - Neck pain [None]
  - Cough [None]
  - Meningitis bacterial [None]
  - Pharyngitis [None]
  - Muscle spasms [None]
  - Condition aggravated [None]
  - Viral infection [None]
